FAERS Safety Report 13883058 (Version 1)
Quarter: 2017Q3

REPORT INFORMATION
  Report Type: Report from Study
  Country: US (occurrence: US)
  Receive Date: 20170818
  Receipt Date: 20170818
  Transmission Date: 20171127
  Serious: No
  Sender: FDA-Public Use
  Company Number: US-ARALEZ PHARMACEUTICALS R+D INC.-2017-ARA-000151

PATIENT
  Age: 69 Year
  Sex: Male
  Weight: 90.7 kg

DRUGS (4)
  1. METOPROLOL SUCCINATE. [Suspect]
     Active Substance: METOPROLOL SUCCINATE
     Indication: CARDIAC DISORDER
     Dosage: 25 MG, BID
     Route: 048
     Dates: start: 2014
  2. BABY ASPIRIN [Concomitant]
     Active Substance: ASPIRIN
     Indication: CARDIAC DISORDER
     Dosage: UNK
     Route: 048
     Dates: start: 2014
  3. BABY ASPIRIN [Concomitant]
     Active Substance: ASPIRIN
     Indication: BLOOD CHOLESTEROL INCREASED
  4. BRILINTA [Suspect]
     Active Substance: TICAGRELOR
     Indication: AORTIC STENT INSERTION
     Dosage: 90 MG, BID
     Route: 048
     Dates: start: 20170727

REACTIONS (8)
  - Hypertension [Unknown]
  - Blood cholesterol increased [Unknown]
  - Diarrhoea [Unknown]
  - Type 2 diabetes mellitus [Unknown]
  - Coronary artery occlusion [Unknown]
  - Hypothyroidism [Unknown]
  - Nausea [Unknown]
  - Dyspepsia [Unknown]

NARRATIVE: CASE EVENT DATE: 2014
